FAERS Safety Report 8622083-5 (Version None)
Quarter: 2012Q3

REPORT INFORMATION
  Report Type: 
  Country: None (occurrence: None)
  Receive Date: 20120822
  Receipt Date: 20120822
  Transmission Date: 20120928
  Serious: Yes (Disabling)
  Sender: FDA-Public Use
  Company Number: None

PATIENT
  Age: 61 Year
  Sex: Female
  Weight: 81.6475 kg

DRUGS (2)
  1. INVEGA [Suspect]
  2. INVEGA [Suspect]
     Indication: BIPOLAR DISORDER
     Dosage: INVEGA	1 X DAY

REACTIONS (3)
  - TREMOR [None]
  - PRODUCT LABEL ISSUE [None]
  - TARDIVE DYSKINESIA [None]
